FAERS Safety Report 8799945 (Version 1)
Quarter: 2012Q4

REPORT INFORMATION
  Report Type: Spontaneous
  Country: US (occurrence: None)
  Receive Date: 20120918
  Receipt Date: 20120918
  Transmission Date: 20130627
  Serious: No
  Sender: FDA-Public Use
  Company Number: None

PATIENT

DRUGS (1)
  1. CELEBREX [Suspect]
     Indication: JOINT PAIN
     Dosage: 2 daily

REACTIONS (2)
  - Nightmare [None]
  - Night sweats [None]
